FAERS Safety Report 6727292-8 (Version None)
Quarter: 2010Q2

REPORT INFORMATION
  Report Type: 
  Country: None (occurrence: None)
  Receive Date: 20100517
  Receipt Date: 20100510
  Transmission Date: 20101027
  Serious: Yes (Other)
  Sender: FDA-Public Use
  Company Number: US-JNJFOC-20091008331

PATIENT
  Sex: Female
  Weight: 63.05 kg

DRUGS (3)
  1. TOPAMAX [Suspect]
     Indication: MIGRAINE PROPHYLAXIS
     Dosage: 1 TABLET AT BED TIME
     Route: 048
  2. ACTONEL [Concomitant]
     Indication: OSTEOPOROSIS
     Route: 048
  3. ZOMIG [Concomitant]
     Route: 045

REACTIONS (5)
  - ALBUMIN URINE PRESENT [None]
  - LYMPHOCYTE COUNT INCREASED [None]
  - PH URINE INCREASED [None]
  - URINARY CASTS [None]
  - WHITE BLOOD CELLS URINE [None]
